FAERS Safety Report 7691902-1 (Version None)
Quarter: 2011Q3

REPORT INFORMATION
  Report Type: 
  Country: None (occurrence: None)
  Receive Date: 20110818
  Receipt Date: 20110106
  Transmission Date: 20111222
  Serious: Yes (Hospitalization)
  Sender: FDA-Public Use
  Company Number: PHHY2010JP89577

PATIENT
  Age: 79 Year
  Sex: Male

DRUGS (7)
  1. NATEGLINIDE [Suspect]
     Dosage: UNK
     Dates: start: 20100415, end: 20100515
  2. ALPHA GLUCOSIDASE INHIBITORS [Concomitant]
     Dosage: UNK UKN, UNK
  3. NATEGLINIDE [Suspect]
     Dosage: 30 MG, DAILY
     Route: 048
     Dates: start: 20090904, end: 20100331
  4. METFFORMIN HYDROCHLORIDE [Concomitant]
     Dosage: 500 MG, DAILY
  5. DRUG FOR HYPERLIPIDEMIA [Concomitant]
     Dosage: UNK UKN, UNK
  6. ANTIHYPERTENSIVE DRUGS [Concomitant]
     Dosage: UNK UKN, UNK
  7. METFORMIN HCL [Concomitant]
     Dosage: 250 MG, UNK
     Dates: start: 20101019

REACTIONS (6)
  - BUNDLE BRANCH BLOCK RIGHT [None]
  - CARDIOMEGALY [None]
  - ATRIOVENTRICULAR BLOCK COMPLETE [None]
  - BLOOD PRESSURE ABNORMAL [None]
  - CARDIAC FAILURE CHRONIC [None]
  - PALPITATIONS [None]
